FAERS Safety Report 6963928-4 (Version None)
Quarter: 2010Q3

REPORT INFORMATION
  Report Type: 
  Country: None (occurrence: None)
  Receive Date: 20100831
  Receipt Date: 20100818
  Transmission Date: 20110219
  Serious: Yes (Hospitalization)
  Sender: FDA-Public Use
  Company Number: 2010EU003855

PATIENT
  Age: 55 Year
  Sex: Male
  Weight: 100 kg

DRUGS (1)
  1. PROGRAF [Suspect]
     Indication: RENAL TRANSPLANT
     Dosage: 300 MG, ORAL, 5 MG, BID
     Route: 048

REACTIONS (4)
  - BLOOD CREATININE INCREASED [None]
  - INTENTIONAL OVERDOSE [None]
  - POISONING [None]
  - SUICIDAL IDEATION [None]
